FAERS Safety Report 9699010 (Version 2)
Quarter: 2014Q3

REPORT INFORMATION
  Report Type: Spontaneous
  Country: US (occurrence: None)
  Receive Date: 20131118
  Receipt Date: 20140902
  Transmission Date: 20150326
  Serious: Yes (Life-Threatening, Hospitalization)
  Sender: FDA-Public Use
  Company Number: 2013P1020912

PATIENT
  Age: 44 Year
  Sex: Female
  Weight: 59 kg

DRUGS (1)
  1. CHLOROQUINE [Suspect]
     Active Substance: CHLOROQUINE\CHLOROQUINE PHOSPHATE
     Indication: INTENTIONAL SELF-INJURY
     Dosage: TOOK 20 TABLETS AT ONCE
     Route: 048

REACTIONS (14)
  - Hypotension [None]
  - Blood potassium decreased [None]
  - Electrocardiogram PR prolongation [None]
  - Cinchonism [None]
  - Intentional self-injury [None]
  - Blood magnesium decreased [None]
  - Electrocardiogram QT prolonged [None]
  - Hyperhidrosis [None]
  - Abdominal pain [None]
  - Electrocardiogram QRS complex prolonged [None]
  - Vomiting [None]
  - Intentional overdose [None]
  - Nausea [None]
  - Hypokalaemia [None]
